FAERS Safety Report 11771462 (Version 1)
Quarter: 2015Q4

REPORT INFORMATION
  Report Type: Spontaneous
  Country: US (occurrence: None)
  Receive Date: 20151123
  Receipt Date: 20151123
  Transmission Date: 20160304
  Serious: Yes (Other)
  Sender: FDA-Public Use
  Company Number: None

PATIENT
  Age: 35 Year
  Sex: Male
  Weight: 100.7 kg

DRUGS (2)
  1. AMPHETAMINE SALT COMBO 20 MG BARR [Suspect]
     Active Substance: AMPHETAMINE ASPARTATE\AMPHETAMINE SULFATE\DEXTROAMPHETAMINE SACCHARATE\DEXTROAMPHETAMINE SULFATE
     Indication: ATTENTION DEFICIT/HYPERACTIVITY DISORDER
     Route: 048
     Dates: start: 20151020, end: 20151103
  2. AMPHETAMINE SALT COMBO 20 MG BARR [Suspect]
     Active Substance: AMPHETAMINE ASPARTATE\AMPHETAMINE SULFATE\DEXTROAMPHETAMINE SACCHARATE\DEXTROAMPHETAMINE SULFATE
     Indication: MOOD SWINGS
     Route: 048
     Dates: start: 20151020, end: 20151103

REACTIONS (4)
  - Drug ineffective [None]
  - Product substitution issue [None]
  - Affective disorder [None]
  - Affect lability [None]

NARRATIVE: CASE EVENT DATE: 20151020
